FAERS Safety Report 13740719 (Version 1)
Quarter: 2017Q3

REPORT INFORMATION
  Report Type: Spontaneous
  Country: US (occurrence: US)
  Receive Date: 20170710
  Receipt Date: 20170710
  Transmission Date: 20171127
  Serious: Yes (Other)
  Sender: FDA-Public Use
  Company Number: None

PATIENT
  Age: 59 Year
  Sex: Male
  Weight: 119.5 kg

DRUGS (1)
  1. OCREVUS [Suspect]
     Active Substance: OCRELIZUMAB
     Indication: MULTIPLE SCLEROSIS
     Dosage: ?          OTHER DOSE:MG;OTHER FREQUENCY:Q 2 WEEKS;?
     Route: 041
     Dates: start: 20170623

REACTIONS (3)
  - Throat irritation [None]
  - Incorrect drug administration rate [None]
  - Infusion related reaction [None]

NARRATIVE: CASE EVENT DATE: 20170623
